FAERS Safety Report 11195619 (Version 19)
Quarter: 2024Q2

REPORT INFORMATION
  Report Type: Spontaneous
  Country: US (occurrence: US)
  Receive Date: 20150617
  Receipt Date: 20240607
  Transmission Date: 20240715
  Serious: Yes (Hospitalization, Other)
  Sender: FDA-Public Use
  Company Number: US-PFIZER INC-2015200275

PATIENT
  Age: 28 Year
  Sex: Female
  Weight: 77 kg

DRUGS (15)
  1. PREMARIN [Suspect]
     Active Substance: ESTROGENS, CONJUGATED
     Indication: Hormone replacement therapy
     Dosage: 0.625 MG, ONCE A DAY
     Route: 048
     Dates: start: 1977
  2. PREMARIN [Suspect]
     Active Substance: ESTROGENS, CONJUGATED
     Indication: Hysterectomy
     Dosage: 0.09 (AS REPORTED), ONCE A DAY
     Dates: start: 1997
  3. PREMARIN [Suspect]
     Active Substance: ESTROGENS, CONJUGATED
     Indication: Artificial menopause
     Dosage: 0.9 MG, EVERY EVENING
     Route: 048
  4. PREMARIN [Suspect]
     Active Substance: ESTROGENS, CONJUGATED
     Indication: Hormone replacement therapy
     Dosage: 0.9 MG, ONCE A DAY
     Route: 048
  5. PREMARIN [Suspect]
     Active Substance: ESTROGENS, CONJUGATED
     Dosage: EVERY DAY IN HER LIFE
  6. LOSARTAN [Concomitant]
     Active Substance: LOSARTAN
     Indication: Blood pressure abnormal
     Dosage: 100 MG, 1X/DAY
     Route: 048
  7. HYDROCHLOROTHIAZIDE [Concomitant]
     Active Substance: HYDROCHLOROTHIAZIDE
     Dosage: UNK
  8. GABAPENTIN [Concomitant]
     Active Substance: GABAPENTIN
     Indication: Fibromyalgia
     Dosage: 600 MG, 3X/DAY (1800MG A DAY)
     Dates: end: 2015
  9. LEVOTHYROXINE [Concomitant]
     Active Substance: LEVOTHYROXINE\LEVOTHYROXINE SODIUM
     Indication: Thyroid disorder
     Dosage: 88 UG, 1X/DAY
     Route: 048
  10. AMITRIPTYLINE [Concomitant]
     Active Substance: AMITRIPTYLINE
     Indication: Affective disorder
     Dosage: 25 MG, 1X/DAY
     Route: 048
  11. MECLIZINE HYDROCHLORIDE [Concomitant]
     Active Substance: MECLIZINE HYDROCHLORIDE
     Indication: Dizziness
     Dosage: 25 MG, 1X/DAY
     Route: 048
  12. METOPROLOL SUCCINATE [Concomitant]
     Active Substance: METOPROLOL SUCCINATE
     Indication: Blood pressure abnormal
     Dosage: 50 MG, 1X/DAY
     Route: 048
  13. PANTOPRAZOLE SODIUM [Concomitant]
     Active Substance: PANTOPRAZOLE SODIUM
     Dosage: 40 MG
     Route: 048
  14. VITAMIN D COMPLEX [Concomitant]
     Dosage: UNK
  15. CITALOPRAM [Concomitant]
     Active Substance: CITALOPRAM\CITALOPRAM HYDROBROMIDE
     Dosage: UNK

REACTIONS (35)
  - Vomiting [Unknown]
  - Chest pain [Unknown]
  - Anxiety [Unknown]
  - Hypertension [Unknown]
  - Illness [Unknown]
  - Hepatic cancer [Recovering/Resolving]
  - Blindness unilateral [Not Recovered/Not Resolved]
  - Back disorder [Unknown]
  - Cataract [Not Recovered/Not Resolved]
  - Lyme disease [Not Recovered/Not Resolved]
  - Colon cancer [Unknown]
  - Pneumothorax [Unknown]
  - Drug dependence [Unknown]
  - Hypoacusis [Unknown]
  - Mood swings [Not Recovered/Not Resolved]
  - Anxiety [Unknown]
  - Mental disorder [Unknown]
  - Pain [Unknown]
  - Irritability [Not Recovered/Not Resolved]
  - Hair growth abnormal [Not Recovered/Not Resolved]
  - Decreased appetite [Unknown]
  - Underweight [Unknown]
  - Anaemia [Unknown]
  - Stress [Unknown]
  - Anger [Unknown]
  - Osteoporosis [Not Recovered/Not Resolved]
  - Personality disorder [Unknown]
  - Frustration tolerance decreased [Unknown]
  - Feeling abnormal [Unknown]
  - Breast fibroma [Unknown]
  - Malaise [Unknown]
  - Memory impairment [Unknown]
  - Pain [Unknown]
  - Back injury [Unknown]
  - Therapeutic response unexpected [Unknown]

NARRATIVE: CASE EVENT DATE: 19790101
